FAERS Safety Report 11769046 (Version 2)
Quarter: 2015Q4

REPORT INFORMATION
  Report Type: Spontaneous
  Country: US (occurrence: US)
  Receive Date: 20151123
  Receipt Date: 20151215
  Transmission Date: 20160304
  Serious: Yes (Other)
  Sender: FDA-Public Use
  Company Number: US-JNJFOC-20151112977

PATIENT
  Age: 41 Year
  Sex: Male

DRUGS (1)
  1. DOXORUBICIN [Suspect]
     Active Substance: DOXORUBICIN
     Indication: CHONDROSARCOMA
     Route: 042

REACTIONS (4)
  - Cardiomyopathy [Recovering/Resolving]
  - Cardiotoxicity [Recovering/Resolving]
  - Product use issue [Unknown]
  - Off label use [Unknown]
